FAERS Safety Report 22646910 (Version 1)
Quarter: 2023Q2

REPORT INFORMATION
  Report Type: Report from Study
  Country: CA (occurrence: CA)
  Receive Date: 20230627
  Receipt Date: 20230627
  Transmission Date: 20230721
  Serious: Yes (Hospitalization, Other)
  Sender: FDA-Public Use
  Company Number: CA-HLS-202301475

PATIENT
  Age: 75 Year
  Sex: Male

DRUGS (6)
  1. CLOZARIL [Suspect]
     Active Substance: CLOZAPINE
     Indication: Product used for unknown indication
     Dosage: HELD FROM JUNE 8, 2023 EVENING
     Route: 048
     Dates: start: 20230413, end: 20230608
  2. RISPERDAL CONSTA [Concomitant]
     Active Substance: RISPERIDONE
     Indication: Product used for unknown indication
     Dosage: 50 MG, INTRAMUSCULAR, EVERY 14 DAYS
     Route: 030
  3. ZYPREXA [Concomitant]
     Active Substance: OLANZAPINE
     Indication: Product used for unknown indication
     Dosage: 10 MG, NIGHTLY
     Route: 065
  4. DOXYCYCLINE [Concomitant]
     Active Substance: DOXYCYCLINE
     Indication: Product used for unknown indication
     Dosage: 100 MG, ORAL, 2 TIMES DAILY, TAKE WITH AT LEAST 8?OUNCES (LARGE GLASS) OF WATER, DO NOT LIE DOWN FOR
     Route: 048
  5. PANTOPRAZOLE MAGNESIUM [Concomitant]
     Active Substance: PANTOPRAZOLE MAGNESIUM
     Indication: Product used for unknown indication
     Dosage: 40 MG, ORAL
     Route: 048
  6. COGENTIN [Concomitant]
     Active Substance: BENZTROPINE MESYLATE
     Indication: Product used for unknown indication
     Dosage: 1 MG, ORAL, 2 TIMES DAILY
     Route: 048

REACTIONS (11)
  - Neutropenia [Unknown]
  - Blood pressure decreased [Unknown]
  - Diverticulitis [Unknown]
  - Decreased appetite [Unknown]
  - Fall [Unknown]
  - Febrile neutropenia [Unknown]
  - Fasting [Recovered/Resolved]
  - Sepsis [Unknown]
  - Abdominal discomfort [Unknown]
  - Leukopenia [Unknown]
  - Weight decreased [Unknown]

NARRATIVE: CASE EVENT DATE: 20230608
